FAERS Safety Report 23917642 (Version 1)
Quarter: 2024Q2

REPORT INFORMATION
  Report Type: Spontaneous
  Country: US (occurrence: US)
  Receive Date: 20240530
  Receipt Date: 20240530
  Transmission Date: 20240716
  Serious: Yes (Hospitalization, Other)
  Sender: FDA-Public Use
  Company Number: US-NOVOPROD-1227474

PATIENT
  Age: 86 Year
  Sex: Male

DRUGS (1)
  1. TRESIBA [Suspect]
     Active Substance: INSULIN DEGLUDEC
     Indication: Type 2 diabetes mellitus
     Dosage: 30 UNITS AT NIGHT
     Route: 058

REACTIONS (5)
  - Diabetic foot infection [Not Recovered/Not Resolved]
  - Urinary tract infection [Not Recovered/Not Resolved]
  - Blindness [Not Recovered/Not Resolved]
  - Device breakage [Not Recovered/Not Resolved]
  - Eye laser surgery [Unknown]

NARRATIVE: CASE EVENT DATE: 20240514
